FAERS Safety Report 5114996-6 (Version None)
Quarter: 2006Q3

REPORT INFORMATION
  Report Type: 
  Country: None (occurrence: None)
  Receive Date: 20060925
  Receipt Date: 20060925
  Transmission Date: 20061208
  Serious: Yes (Hospitalization)
  Sender: FDA-Public Use
  Company Number: None

PATIENT
  Age: 50 Year
  Sex: Male
  Weight: 103.7 kg

DRUGS (2)
  1. CIPROFLOXACIN [Suspect]
     Indication: ABSCESS
     Dosage: 500 MG BID PO
     Route: 048
  2. CIPROFLOXACIN [Suspect]
     Indication: DIVERTICULITIS
     Dosage: 500 MG BID PO
     Route: 048

REACTIONS (8)
  - BENIGN PROSTATIC HYPERPLASIA [None]
  - DRUG ERUPTION [None]
  - EOSINOPHILIA [None]
  - INCORRECT DOSE ADMINISTERED [None]
  - NORMOCHROMIC NORMOCYTIC ANAEMIA [None]
  - RASH MORBILLIFORM [None]
  - RASH PRURITIC [None]
  - VIRAL UPPER RESPIRATORY TRACT INFECTION [None]
